FAERS Safety Report 18710204 (Version 1)
Quarter: 2021Q1

REPORT INFORMATION
  Report Type: Spontaneous
  Country: PL (occurrence: PL)
  Receive Date: 20210106
  Receipt Date: 20210106
  Transmission Date: 20210419
  Serious: Yes (Life-Threatening, Hospitalization, Other)
  Sender: FDA-Public Use
  Company Number: PL-JNJFOC-20210104716

PATIENT
  Age: 32 Year
  Sex: Female

DRUGS (4)
  1. DIAZEPAM. [Suspect]
     Active Substance: DIAZEPAM
     Indication: SCHIZOPHRENIA
     Dosage: DIAZEPAM 5 MG IN THE MORNING AND IN THE EVENING
     Route: 065
  2. CLOZAPINE. [Suspect]
     Active Substance: CLOZAPINE
     Indication: SCHIZOPHRENIA
     Dosage: CLOZAPINE 75 MG IN THE MORNING + AT NOON, 50 MG IN THE EVENING
     Route: 065
  3. VALPROIC ACID. [Suspect]
     Active Substance: VALPROIC ACID
     Indication: SCHIZOPHRENIA
     Dosage: VALPROIC ACID 500 MG IN THE MORNING + AT NOON, 1000 MG IN THE EVENING
     Route: 065
  4. RISPERIDONE. [Suspect]
     Active Substance: RISPERIDONE
     Indication: SCHIZOPHRENIA
     Dosage: RISPERIDONE 2MG IN THE MORNING  + AT NOON, 4 MG IN THE EVENING
     Route: 065

REACTIONS (4)
  - Suspected suicide attempt [Recovered/Resolved]
  - Toxicity to various agents [Recovered/Resolved]
  - Non-cardiogenic pulmonary oedema [Recovered/Resolved]
  - Extrapyramidal disorder [Recovered/Resolved]
